FAERS Safety Report 10180382 (Version 1)
Quarter: 2014Q2

REPORT INFORMATION
  Report Type: Spontaneous
  Country: US (occurrence: US)
  Receive Date: 20140519
  Receipt Date: 20140519
  Transmission Date: 20141212
  Serious: No
  Sender: FDA-Public Use
  Company Number: US-AMGEN INC.-USASP2013079925

PATIENT
  Age: 72 Year
  Sex: Female

DRUGS (13)
  1. PROLIA [Suspect]
     Indication: PRODUCT USED FOR UNKNOWN INDICATION
     Dosage: UNK
     Route: 065
  2. MULTIVITAMIN                       /00097801/ [Concomitant]
  3. GLUCOPHAGE [Concomitant]
  4. LIPITOR [Concomitant]
  5. PLAVIX [Concomitant]
  6. ZETIA [Concomitant]
  7. VESICARE [Concomitant]
  8. NEXIUM                             /01479302/ [Concomitant]
  9. NORVASC [Concomitant]
  10. COZAAR [Concomitant]
  11. TOPROL XL [Concomitant]
  12. WELLBUTRIN [Concomitant]
  13. ALIGN [Concomitant]

REACTIONS (1)
  - Osteoporosis [Unknown]
